FAERS Safety Report 10245726 (Version 4)
Quarter: 2015Q1

REPORT INFORMATION
  Report Type: Report from Study
  Country: CA (occurrence: CA)
  Receive Date: 20140619
  Receipt Date: 20150225
  Transmission Date: 20150720
  Serious: Yes (Hospitalization, Other)
  Sender: FDA-Public Use
  Company Number: CA-AMGEN-CANSP2014045255

PATIENT
  Age: 62 Year
  Sex: Female
  Weight: 62.5 kg

DRUGS (1)
  1. PROLIA [Suspect]
     Active Substance: DENOSUMAB
     Indication: OSTEOPOROSIS POSTMENOPAUSAL
     Dosage: 60 MG, Q6MO
     Route: 058
     Dates: start: 201111

REACTIONS (2)
  - Tooth disorder [Unknown]
  - Breast neoplasm [Recovering/Resolving]

NARRATIVE: CASE EVENT DATE: 20141202
